FAERS Safety Report 8346074 (Version 4)
Quarter: 2013Q4

REPORT INFORMATION
  Report Type: Report from Study
  Country: US (occurrence: US)
  Receive Date: 20120120
  Receipt Date: 20131107
  Transmission Date: 20140711
  Serious: Yes (Hospitalization)
  Sender: FDA-Public Use
  Company Number: PHEH2012US001297

PATIENT
  Age: 56 Year
  Sex: Male
  Weight: 61.68 kg

DRUGS (8)
  1. GLEEVEC [Suspect]
     Indication: CHRONIC MYELOID LEUKAEMIA
     Dosage: 400 MG, QD
     Route: 048
     Dates: start: 20000829
  2. GLEEVEC [Suspect]
     Dosage: 600 MG, DAILY
     Route: 048
  3. GLEEVEC [Suspect]
     Dosage: 400 MG, DAILY
     Route: 048
     Dates: start: 2000
  4. GLEEVEC [Suspect]
     Dosage: 1 DF (400 MG), DAILY
     Route: 048
     Dates: start: 2007
  5. SINGULAIR [Concomitant]
     Dosage: UNK UKN, UNK
  6. SYNTHROID [Concomitant]
     Dosage: UNK UKN, UNK
  7. TEMAZEPAM [Concomitant]
     Dosage: UNK UKN, UNK
  8. ZETIA [Concomitant]
     Dosage: UNK UKN, UNK

REACTIONS (7)
  - Infection [Unknown]
  - Large intestine perforation [Unknown]
  - Weight gain poor [Unknown]
  - Weight decreased [Not Recovered/Not Resolved]
  - Dysgeusia [Recovering/Resolving]
  - Nausea [Not Recovered/Not Resolved]
  - Fatigue [Not Recovered/Not Resolved]
